FAERS Safety Report 10070222 (Version 1)
Quarter: 2014Q2

REPORT INFORMATION
  Report Type: Spontaneous
  Country: US (occurrence: US)
  Receive Date: 20140410
  Receipt Date: 20140410
  Transmission Date: 20141212
  Serious: Yes (Hospitalization)
  Sender: FDA-Public Use
  Company Number: US-BEH-2014041616

PATIENT
  Age: 72 Year
  Sex: Female
  Weight: 74 kg

DRUGS (30)
  1. PRIVIGEN [Suspect]
     Route: 042
  2. PRIVIGEN [Suspect]
     Indication: IMMUNODEFICIENCY COMMON VARIABLE
     Route: 042
  3. DIPHENHYDRAMINE [Concomitant]
  4. HEPARIN [Concomitant]
  5. SODIUM CHLORIDE [Concomitant]
  6. EPI-PEN [Concomitant]
  7. TAZTIA [Concomitant]
  8. COUMADIN [Concomitant]
  9. SINGULAIR [Concomitant]
  10. DETROL LA [Concomitant]
  11. ASTEPRO [Concomitant]
  12. LASIX [Concomitant]
  13. TRICOR [Concomitant]
  14. QUINIDINE [Concomitant]
  15. PROMETHAZINE [Concomitant]
  16. FOLIC ACID [Concomitant]
  17. SYMBICORT [Concomitant]
  18. NEXIUM [Concomitant]
  19. SPIRONOLACTONE [Concomitant]
  20. ALLOPURINOL [Concomitant]
  21. FEXOFENADINE [Concomitant]
  22. HYDROXYZINE [Concomitant]
  23. DOCUSATE [Concomitant]
  24. MAGNESIUM [Concomitant]
  25. THEOPHYLLINE [Concomitant]
  26. LOPERAMIDE [Concomitant]
  27. PROAIR [Concomitant]
  28. VITAMIN B [Concomitant]
  29. VITAMIN D [Concomitant]
  30. NASCOBAL [Concomitant]

REACTIONS (1)
  - Blood magnesium decreased [Unknown]
